FAERS Safety Report 12182503 (Version 1)
Quarter: 2016Q1

REPORT INFORMATION
  Report Type: Spontaneous
  Country: US (occurrence: US)
  Receive Date: 20160316
  Receipt Date: 20160316
  Transmission Date: 20160526
  Serious: No
  Sender: FDA-Public Use
  Company Number: US-009507513-1603USA007172

PATIENT
  Age: 17 Year
  Sex: Female
  Weight: 53.61 kg

DRUGS (1)
  1. NEXPLANON [Suspect]
     Active Substance: ETONOGESTREL
     Indication: CONTRACEPTION
     Dosage: EVERY 3 YEARS AT LEFT ARM
     Route: 059
     Dates: start: 20160304

REACTIONS (1)
  - Implant site bruising [Unknown]

NARRATIVE: CASE EVENT DATE: 201603
